FAERS Safety Report 18028230 (Version 2)
Quarter: 2020Q3

REPORT INFORMATION
  Report Type: Spontaneous
  Country: US (occurrence: US)
  Receive Date: 20200716
  Receipt Date: 20200803
  Transmission Date: 20201103
  Serious: Yes (Other)
  Sender: FDA-Public Use
  Company Number: US-BEH-2020120095

PATIENT
  Sex: Female

DRUGS (2)
  1. HIZENTRA [Suspect]
     Active Substance: HUMAN IMMUNOGLOBULIN G
     Dosage: 25 GRAM, QOW
     Route: 058
     Dates: start: 201812
  2. HIZENTRA [Suspect]
     Active Substance: HUMAN IMMUNOGLOBULIN G
     Indication: IMMUNODEFICIENCY COMMON VARIABLE
     Dosage: 25 GRAM, QOW
     Route: 058
     Dates: start: 20191119

REACTIONS (5)
  - Product distribution issue [Unknown]
  - COVID-19 [Unknown]
  - Insurance issue [Unknown]
  - Ill-defined disorder [Unknown]
  - Asthenia [Unknown]
